FAERS Safety Report 13129639 (Version 1)
Quarter: 2017Q1

REPORT INFORMATION
  Report Type: Spontaneous
  Country: US (occurrence: US)
  Receive Date: 20170118
  Receipt Date: 20170118
  Transmission Date: 20170428
  Serious: Yes (Hospitalization)
  Sender: FDA-Public Use
  Company Number: None

PATIENT
  Age: 71 Year
  Sex: Male
  Weight: 86.85 kg

DRUGS (8)
  1. POTASSIUM [Concomitant]
     Active Substance: POTASSIUM
  2. METOLOAZONE [Concomitant]
  3. CALCITRIOL. [Concomitant]
     Active Substance: CALCITRIOL
  4. CALCIUM ACETATE. [Suspect]
     Active Substance: CALCIUM ACETATE
     Indication: END STAGE RENAL DISEASE
     Dosage: ?          QUANTITY:1 CAPSULE(S);?
     Route: 048
  5. CLONIDINE. [Concomitant]
     Active Substance: CLONIDINE
  6. HYDRAZALINE [Concomitant]
  7. LASIX [Concomitant]
     Active Substance: FUROSEMIDE
  8. METOPROLOL TARTRATE. [Concomitant]
     Active Substance: METOPROLOL TARTRATE

REACTIONS (3)
  - Dizziness [None]
  - Insomnia [None]
  - Dyspnoea [None]

NARRATIVE: CASE EVENT DATE: 20161227
